FAERS Safety Report 7090110-5 (Version None)
Quarter: 2010Q4

REPORT INFORMATION
  Report Type: 
  Country: None (occurrence: None)
  Receive Date: 20101105
  Receipt Date: 20101105
  Transmission Date: 20110411
  Serious: No
  Sender: FDA-Public Use
  Company Number: None

PATIENT

DRUGS (2)
  1. INDOMETHACIN [Suspect]
     Indication: GOUT
     Dosage: 50 MG 1 2X DAILY 2 DAYS 1 PER DAY FOR 3 DAYS
     Dates: start: 20100626
  2. INDOMETHACIN [Suspect]
     Indication: GOUT
     Dosage: 50 MG 1 3X DAILY ONLY TOOK 2 PILLS
     Dates: start: 20101011

REACTIONS (3)
  - DIARRHOEA [None]
  - INFLUENZA [None]
  - NAUSEA [None]
